FAERS Safety Report 14916779 (Version 2)
Quarter: 2018Q2

REPORT INFORMATION
  Report Type: Spontaneous
  Country: BR (occurrence: BR)
  Receive Date: 20180520
  Receipt Date: 20180606
  Transmission Date: 20180711
  Serious: Yes (Other)
  Sender: FDA-Public Use
  Company Number: BR-ROCHE-510719

PATIENT
  Age: 51 Year
  Sex: Male
  Weight: 87 kg

DRUGS (8)
  1. RIVOTRIL [Suspect]
     Active Substance: CLONAZEPAM
     Route: 048
  2. CITALOPRAM [Concomitant]
     Active Substance: CITALOPRAM HYDROBROMIDE
     Indication: DEPRESSION
     Dosage: DRUG NAME REPORTED: CITTA
     Route: 065
  3. GENERIC COMPONENT(S) NOT KNOWN [Concomitant]
     Active Substance: UNSPECIFIED INGREDIENT
     Indication: SLEEP DISORDER THERAPY
  4. METFORMIN HYDROCHLORIDE. [Concomitant]
     Active Substance: METFORMIN HYDROCHLORIDE
  5. LEXOTAN [Suspect]
     Active Substance: BROMAZEPAM
     Indication: ANXIETY
     Route: 065
  6. RIVOTRIL [Suspect]
     Active Substance: CLONAZEPAM
     Indication: ANXIETY
     Route: 065
  7. CEDUR RETARD [Concomitant]
     Active Substance: BEZAFIBRATE
  8. DEPAKOTE [Concomitant]
     Active Substance: DIVALPROEX SODIUM
     Route: 065

REACTIONS (8)
  - Somnolence [Unknown]
  - Overdose [Unknown]
  - Hypoglycaemia [Not Recovered/Not Resolved]
  - Diabetes mellitus [Unknown]
  - Sluggishness [Unknown]
  - Fatigue [Unknown]
  - Product solubility abnormal [Unknown]
  - Drug dependence [Not Recovered/Not Resolved]
